FAERS Safety Report 14370755 (Version 5)
Quarter: 2018Q2

REPORT INFORMATION
  Report Type: Spontaneous
  Country: US (occurrence: US)
  Receive Date: 20180110
  Receipt Date: 20180530
  Transmission Date: 20180711
  Serious: No
  Sender: FDA-Public Use
  Company Number: US-PFIZER INC-2018007012

PATIENT
  Age: 77 Year
  Sex: Female

DRUGS (5)
  1. XALKORI [Suspect]
     Active Substance: CRIZOTINIB
     Indication: LUNG ADENOCARCINOMA STAGE IV
     Dosage: 500 MG, 2X/DAY (TWO 250MG TABLETS, TWICE A DAY)
     Route: 048
     Dates: start: 20170918, end: 20171031
  2. XALKORI [Suspect]
     Active Substance: CRIZOTINIB
     Dosage: 250 MG, 2X/DAY
     Route: 048
     Dates: start: 20170920, end: 20171031
  3. XALKORI [Suspect]
     Active Substance: CRIZOTINIB
     Dosage: 200 MG, 1X/DAY
     Route: 048
     Dates: end: 20180406
  4. LEVOTHYROXINE. [Concomitant]
     Active Substance: LEVOTHYROXINE
     Indication: HYPOTHYROIDISM
     Dosage: 50 UG, DAILY
  5. XALKORI [Suspect]
     Active Substance: CRIZOTINIB
     Dosage: 200 MG, 1X/DAY
     Route: 048
     Dates: start: 20171228

REACTIONS (13)
  - Product use issue [Unknown]
  - Blood calcium decreased [Unknown]
  - Drug dispensing error [Unknown]
  - Nausea [Unknown]
  - Neoplasm progression [Unknown]
  - Aspartate aminotransferase increased [Recovering/Resolving]
  - Carbon dioxide increased [Unknown]
  - Glomerular filtration rate increased [Unknown]
  - Alanine aminotransferase increased [Recovering/Resolving]
  - Blood glucose increased [Unknown]
  - Hepatic enzyme increased [Recovering/Resolving]
  - Blood potassium decreased [Unknown]
  - Blood albumin decreased [Unknown]

NARRATIVE: CASE EVENT DATE: 20170918
